FAERS Safety Report 9963076 (Version 2)
Quarter: 2014Q1

REPORT INFORMATION
  Report Type: Other
  Country: US (occurrence: US)
  Receive Date: 20140305
  Receipt Date: 20140305
  Transmission Date: 20141002
  Serious: Yes (Hospitalization, Other)
  Sender: FDA-Public Use
  Company Number: US-ACORDA-ACO_35228_2013

PATIENT
  Age: 49 Year
  Sex: Female
  Weight: 58.5 kg

DRUGS (1)
  1. AMPYRA [Suspect]
     Indication: PRODUCT USED FOR UNKNOWN INDICATION
     Dosage: 10 MG, Q 12 HRS
     Route: 065
     Dates: start: 201302

REACTIONS (5)
  - Blood potassium increased [Recovering/Resolving]
  - Major depression [Recovering/Resolving]
  - Iron deficiency anaemia [Recovering/Resolving]
  - Gait disturbance [Recovering/Resolving]
  - Stress [Unknown]
